FAERS Safety Report 24256574 (Version 1)
Quarter: 2024Q3

REPORT INFORMATION
  Report Type: Spontaneous
  Country: CN (occurrence: CN)
  Receive Date: 20240828
  Receipt Date: 20240828
  Transmission Date: 20241017
  Serious: Yes (Life-Threatening, Other)
  Sender: Haleon PLC
  Company Number: CN-HALEON-2193702

PATIENT

DRUGS (1)
  1. IBUPROFEN [Suspect]
     Active Substance: IBUPROFEN
     Indication: Product used for unknown indication

REACTIONS (3)
  - Gastrointestinal haemorrhage [Unknown]
  - Gastric mucosal lesion [Unknown]
  - Wrong dose [Unknown]
